FAERS Safety Report 23996011 (Version 1)
Quarter: 2024Q2

REPORT INFORMATION
  Report Type: Spontaneous
  Country: US (occurrence: US)
  Receive Date: 20240620
  Receipt Date: 20240620
  Transmission Date: 20240716
  Serious: Yes (Hospitalization)
  Sender: FDA-Public Use
  Company Number: US-JNJFOC-20240636010

PATIENT
  Sex: Female

DRUGS (2)
  1. TREMFYA [Suspect]
     Active Substance: GUSELKUMAB
     Indication: Psoriasis
     Route: 065
     Dates: start: 202312
  2. TREMFYA [Suspect]
     Active Substance: GUSELKUMAB
     Indication: Psoriatic arthropathy

REACTIONS (6)
  - Cellulitis [Recovered/Resolved]
  - Abscess [Recovered/Resolved]
  - Psoriasis [Recovered/Resolved]
  - Arthralgia [Unknown]
  - Fatigue [Unknown]
  - Product label issue [Unknown]

NARRATIVE: CASE EVENT DATE: 20240401
